FAERS Safety Report 4640491-4 (Version None)
Quarter: 2005Q2

REPORT INFORMATION
  Report Type: 
  Country: None (occurrence: None)
  Receive Date: 20050328
  Receipt Date: 20050128
  Transmission Date: 20051028
  Serious: No
  Sender: FDA-Public Use
  Company Number: USA050189473

PATIENT
  Age: 9 Year
  Sex: Male
  Weight: 32 kg

DRUGS (2)
  1. STRATTERA [Suspect]
     Indication: ATTENTION DEFICIT/HYPERACTIVITY DISORDER
     Dosage: 40 MG DAY
     Dates: start: 20040901, end: 20050101
  2. DESMOPRESSIN [Concomitant]

REACTIONS (2)
  - DISTURBANCE IN ATTENTION [None]
  - PERSONALITY DISORDER [None]
